FAERS Safety Report 8592755-X (Version None)
Quarter: 2012Q3

REPORT INFORMATION
  Report Type: 
  Country: None (occurrence: None)
  Receive Date: 20120814
  Receipt Date: 20120809
  Transmission Date: 20120928
  Serious: Yes (Other)
  Sender: FDA-Public Use
  Company Number: JP-PFIZER INC-2012195796

PATIENT
  Age: 47 Year
  Sex: Female
  Weight: 44 kg

DRUGS (10)
  1. WARFARIN POTASSIUM [Concomitant]
     Dosage: 3 MG
     Route: 048
     Dates: start: 20110625
  2. ARGATROBAN [Suspect]
     Dosage: 1.3MCG/KG/MIN
     Route: 051
     Dates: start: 20110616, end: 20110621
  3. ARGATROBAN [Suspect]
     Dosage: 1.1MCG/KG/MIN
     Route: 051
     Dates: start: 20110613, end: 20110616
  4. ARGATROBAN [Suspect]
     Indication: HEPARIN-INDUCED THROMBOCYTOPENIA
     Dosage: 0.7MCG/KG/MIN
     Route: 051
     Dates: start: 20110609, end: 20110610
  5. ARGATROBAN [Suspect]
     Dosage: 0.8 MCG/KG/MIN
     Route: 051
     Dates: start: 20110610, end: 20110612
  6. ARGATROBAN [Suspect]
     Dosage: 1.0MCG/KG/MIN
     Route: 051
     Dates: start: 20110621, end: 20110623
  7. WARFARIN POTASSIUM [Concomitant]
     Dosage: 2.5 MG
     Route: 048
     Dates: start: 20110630
  8. HEPARIN SODIUM [Concomitant]
     Indication: DEEP VEIN THROMBOSIS
     Dosage: UNK
     Route: 051
     Dates: start: 20110530
  9. ARGATROBAN [Suspect]
     Dosage: 1.0MCG/KG/MIN
     Route: 051
     Dates: start: 20110612, end: 20110613
  10. WARFARIN SODIUM [Suspect]
     Dosage: 2 MG
     Route: 048
     Dates: start: 20110620

REACTIONS (1)
  - HEPATIC FUNCTION ABNORMAL [None]
